FAERS Safety Report 8681378 (Version 3)
Quarter: 2012Q4

REPORT INFORMATION
  Report Type: 
  Country: US (occurrence: US)
  Receive Date: 20120725
  Receipt Date: 20120911
  Transmission Date: 20130627
  Serious: No
  Sender: FDA-Public Use
  Company Number: US-PFIZER INC-2012178115

PATIENT
  Age: 57 Year
  Sex: Female
  Weight: 92.52 kg

DRUGS (12)
  1. LIPITOR [Suspect]
     Indication: HYPERLIPIDAEMIA
     Dosage: 20 mg, 1x/day
     Route: 048
     Dates: start: 20120428, end: 20120618
  2. SYNTHROID [Concomitant]
     Dosage: 200 ug, 1x/day
     Route: 048
     Dates: start: 20120418
  3. DIOVAN [Concomitant]
     Dosage: 40 mg, 1x/day
     Route: 048
     Dates: start: 20120418
  4. ESIDRIX [Concomitant]
     Dosage: 25 mg, 1x/day
     Route: 048
     Dates: start: 20120206
  5. CETAPHIL MOISTURIZING [Concomitant]
     Dosage: (apply to affected area as needed)
     Route: 061
  6. IRON [Concomitant]
     Dosage: 50 mg, 1x/day
     Route: 048
  7. METHYLFOLATE [Concomitant]
     Dosage: 15 mg, 1x/day
     Route: 048
  8. CELEXA [Concomitant]
     Dosage: 60 mg, 1x/day
     Route: 048
  9. KLONOPIN [Concomitant]
     Dosage: UNK
     Route: 048
  10. MIRAPEX [Concomitant]
     Dosage: 6 mg, 1x/day
     Route: 048
  11. LAMICTAL [Concomitant]
     Dosage: 150 mg, 1x/day
     Route: 048
  12. SEROQUEL XR [Concomitant]
     Dosage: 150 mg, UNK
     Route: 048
     Dates: start: 20120417, end: 20120523

REACTIONS (1)
  - Myalgia [Recovered/Resolved]
